FAERS Safety Report 6984653 (Version 3)
Quarter: 2014Q1

REPORT INFORMATION
  Report Type: Spontaneous
  Country: US (occurrence: US)
  Receive Date: 20090501
  Receipt Date: 20140325
  Transmission Date: 20141002
  Serious: Yes (Hospitalization, Other)
  Sender: FDA-Public Use
  Company Number: US-ALEXION-A200800163

PATIENT
  Age: 48 Year
  Sex: Female

DRUGS (9)
  1. SOLIRIS [Suspect]
     Indication: PAROXYSMAL NOCTURNAL HAEMOGLOBINURIA
     Dosage: 600 MG, SINGLE
     Route: 042
     Dates: start: 20080623, end: 20080623
  2. SOLIRIS [Suspect]
     Dosage: 600 MG, SINGLE
     Route: 042
     Dates: start: 20080630, end: 20080630
  3. ESTROGEN NOS [Concomitant]
     Indication: ARTIFICIAL MENOPAUSE
     Dosage: UNK, QD
     Route: 048
  4. COUMADIN [Concomitant]
     Indication: PROPHYLAXIS
     Dosage: UNK, QD
     Route: 048
  5. LASIX /00032601/ [Concomitant]
  6. POTASSIUM [Concomitant]
     Dosage: UNK, QD
     Route: 048
  7. PROTONIX                           /01263201/ [Concomitant]
     Dosage: 40 MG, QD
  8. LUNESTA [Concomitant]
     Dosage: 2 MG, HS
  9. PREDNISONE [Concomitant]
     Dosage: 10 MG, QD

REACTIONS (11)
  - Cardiac failure congestive [Recovering/Resolving]
  - Atrial fibrillation [Recovered/Resolved]
  - Renal failure acute [Recovering/Resolving]
  - Mitral valve incompetence [Unknown]
  - Renal disorder [Unknown]
  - Transfusion [Unknown]
  - HIV test positive [Not Recovered/Not Resolved]
  - Ileus [Recovering/Resolving]
  - Proteinuria [Recovering/Resolving]
  - Complement factor decreased [Recovering/Resolving]
  - Haemolysis [Unknown]
